FAERS Safety Report 8257238-5 (Version None)
Quarter: 2012Q2

REPORT INFORMATION
  Report Type: 
  Country: None (occurrence: None)
  Receive Date: 20120403
  Receipt Date: 20120323
  Transmission Date: 20120825
  Serious: Yes (Hospitalization)
  Sender: FDA-Public Use
  Company Number: TR-ELI_LILLY_AND_COMPANY-TR201203001367

PATIENT
  Sex: Female

DRUGS (1)
  1. HUMALOG MIX 75/25 [Suspect]
     Dosage: UNK, UNKNOWN

REACTIONS (7)
  - THROMBOSIS [None]
  - CONTUSION [None]
  - FEMUR FRACTURE [None]
  - DIABETIC COMA [None]
  - HYPERGLYCAEMIA [None]
  - FALL [None]
  - DRUG DOSE OMISSION [None]
